FAERS Safety Report 12910382 (Version 2)
Quarter: 2016Q4

REPORT INFORMATION
  Report Type: Spontaneous
  Country: GB (occurrence: GB)
  Receive Date: 20161104
  Receipt Date: 20161104
  Transmission Date: 20170207
  Serious: Yes (Other)
  Sender: FDA-Public Use
  Company Number: GB-CIPLA LTD.-2016GB20570

PATIENT

DRUGS (1)
  1. SERTRALINE [Suspect]
     Active Substance: SERTRALINE HYDROCHLORIDE
     Indication: ANXIETY
     Dosage: 50 MG, DAILY
     Route: 065

REACTIONS (6)
  - Micturition disorder [Unknown]
  - Fatigue [Unknown]
  - Urinary incontinence [Unknown]
  - Abasia [Unknown]
  - Blood sodium decreased [Unknown]
  - Judgement impaired [Not Recovered/Not Resolved]
